FAERS Safety Report 7941719-5 (Version None)
Quarter: 2011Q4

REPORT INFORMATION
  Report Type: 
  Country: None (occurrence: None)
  Receive Date: 20111128
  Receipt Date: 20111128
  Transmission Date: 20120403
  Serious: Yes (Other)
  Sender: FDA-Public Use
  Company Number: None

PATIENT
  Age: 37 Year
  Sex: Female
  Weight: 65.77 kg

DRUGS (2)
  1. LORATADINE [Suspect]
     Indication: MULTIPLE ALLERGIES
     Dosage: 10 MG
     Route: 048
     Dates: start: 20110515, end: 20111116
  2. LORATADINE [Suspect]
     Indication: SINUS HEADACHE
     Dosage: 10 MG
     Route: 048
     Dates: start: 20110515, end: 20111116

REACTIONS (11)
  - MENTAL IMPAIRMENT [None]
  - AMNESIA [None]
  - FATIGUE [None]
  - ANXIETY [None]
  - SLEEP DISORDER [None]
  - INSOMNIA [None]
  - WEIGHT INCREASED [None]
  - SOMNOLENCE [None]
  - THYROID DISORDER [None]
  - NERVOUS SYSTEM DISORDER [None]
  - IRRITABILITY [None]
